FAERS Safety Report 4489889-8 (Version None)
Quarter: 2004Q4

REPORT INFORMATION
  Report Type: 
  Country: None (occurrence: None)
  Receive Date: 20041101
  Receipt Date: 20041021
  Transmission Date: 20050328
  Serious: Yes (Hospitalization)
  Sender: FDA-Public Use
  Company Number: US-BRISTOL-MYERS SQUIBB COMPANY-12738548

PATIENT
  Age: 43 Year
  Sex: Female

DRUGS (4)
  1. TETRACYCLINE HCL [Suspect]
     Indication: PEPTIC ULCER
     Dates: start: 20040901
  2. TETRACYCLINE HCL [Suspect]
     Indication: HELICOBACTER INFECTION
     Dates: start: 20040901
  3. LANSOPRAZOLE [Concomitant]
  4. FLAXSEED OIL [Concomitant]

REACTIONS (2)
  - ABDOMINAL PAIN [None]
  - HEPATITIS [None]
